FAERS Safety Report 7254849-0 (Version None)
Quarter: 2011Q1

REPORT INFORMATION
  Report Type: 
  Country: None (occurrence: None)
  Receive Date: 20110129
  Receipt Date: 20100310
  Transmission Date: 20110831
  Serious: No
  Sender: FDA-Public Use
  Company Number: US-ABBOTT-10P-163-0631542-00

PATIENT
  Sex: Male
  Weight: 81.72 kg

DRUGS (3)
  1. MELOXICAM [Concomitant]
     Indication: PSORIATIC ARTHROPATHY
  2. HUMIRA [Suspect]
     Indication: PSORIATIC ARTHROPATHY
     Dates: start: 20091201
  3. LIPITOR [Concomitant]
     Indication: BLOOD CHOLESTEROL INCREASED

REACTIONS (1)
  - INJECTION SITE PAIN [None]
